FAERS Safety Report 6781477-3 (Version None)
Quarter: 2010Q2

REPORT INFORMATION
  Report Type: 
  Country: None (occurrence: None)
  Receive Date: 20100617
  Receipt Date: 20100617
  Transmission Date: 20101027
  Serious: Yes (Other)
  Sender: FDA-Public Use
  Company Number: None

PATIENT
  Sex: Male
  Weight: 89 kg

DRUGS (1)
  1. QUETIAPINE [Suspect]
     Indication: BIPOLAR DISORDER
     Dosage: 50MG ONE DOSE PO 05/26/10 ONLY
     Route: 048
     Dates: start: 20100526

REACTIONS (2)
  - BURNING SENSATION [None]
  - PAIN [None]
